FAERS Safety Report 19740267 (Version 2)
Quarter: 2021Q3

REPORT INFORMATION
  Report Type: Report from Study
  Country: BR (occurrence: BR)
  Receive Date: 20210824
  Receipt Date: 20210924
  Transmission Date: 20211014
  Serious: Yes (Other)
  Sender: FDA-Public Use
  Company Number: NVSC2021BR175672

PATIENT
  Age: 62 Year
  Sex: Female
  Weight: 108 kg

DRUGS (7)
  1. KISQALI [Suspect]
     Active Substance: RIBOCICLIB
     Dosage: 3 DF, QD (3 TABLETS OF 200 MG)
     Route: 065
     Dates: start: 20210730
  2. DEXILANT [Concomitant]
     Active Substance: DEXLANSOPRAZOLE
     Indication: PRODUCT USED FOR UNKNOWN INDICATION
     Dosage: UNK
     Route: 065
  3. KISQALI [Suspect]
     Active Substance: RIBOCICLIB
     Indication: BREAST CANCER
     Dosage: 3 DF, QD
     Route: 065
     Dates: start: 20210728
  4. PAROXETINE. [Concomitant]
     Active Substance: PAROXETINE
     Indication: PRODUCT USED FOR UNKNOWN INDICATION
     Dosage: 75 MG
     Route: 065
  5. KISQALI [Suspect]
     Active Substance: RIBOCICLIB
     Dosage: 600 MG, QD
     Route: 048
     Dates: start: 20210723, end: 20210812
  6. DOMPERIDONE [Concomitant]
     Active Substance: DOMPERIDONE
     Indication: PRODUCT USED FOR UNKNOWN INDICATION
     Dosage: UNK
     Route: 065
  7. MORPHINE [Concomitant]
     Active Substance: MORPHINE
     Indication: PAIN
     Dosage: UNK (PATCH)
     Route: 065
     Dates: end: 20210730

REACTIONS (23)
  - Epistaxis [Recovering/Resolving]
  - Rhinitis [Recovering/Resolving]
  - Confusional state [Recovered/Resolved]
  - Back disorder [Recovering/Resolving]
  - Vulvovaginal dryness [Recovering/Resolving]
  - Amnesia [Recovered/Resolved]
  - Dry skin [Recovering/Resolving]
  - Erythema [Recovering/Resolving]
  - Nasal congestion [Recovering/Resolving]
  - Swelling [Recovered/Resolved]
  - Abdominal mass [Recovering/Resolving]
  - Dry eye [Recovering/Resolving]
  - Mucosal dryness [Recovering/Resolving]
  - Swelling [Recovered/Resolved]
  - Ear disorder [Recovering/Resolving]
  - Skin exfoliation [Unknown]
  - Dysarthria [Recovered/Resolved]
  - Labyrinthitis [Recovered/Resolved]
  - Malaise [Unknown]
  - Dyspnoea [Recovered/Resolved]
  - Amnesia [Recovered/Resolved]
  - Confusional state [Recovered/Resolved]
  - Lacrimation increased [Unknown]

NARRATIVE: CASE EVENT DATE: 2021
